FAERS Safety Report 9646169 (Version 2)
Quarter: 2013Q4

REPORT INFORMATION
  Report Type: Spontaneous
  Country: JP (occurrence: JP)
  Receive Date: 20131025
  Receipt Date: 20131030
  Transmission Date: 20140711
  Serious: Yes (Other)
  Sender: FDA-Public Use
  Company Number: CHPA2013JP016167

PATIENT
  Sex: Female

DRUGS (1)
  1. NICOTINELL TTS [Suspect]
     Indication: SMOKING CESSATION THERAPY
     Dosage: UNK, UNK
     Route: 062

REACTIONS (3)
  - Blister [Unknown]
  - Dermatitis contact [Unknown]
  - Scar [Unknown]
